FAERS Safety Report 23483653 (Version 2)
Quarter: 2024Q4

REPORT INFORMATION
  Report Type: Report from Study
  Country: NL (occurrence: NL)
  Receive Date: 20240205
  Receipt Date: 20241203
  Transmission Date: 20250115
  Serious: Yes (Congenital Anomaly)
  Sender: MYLAN
  Company Number: NL-UCBSA-2024002899

PATIENT
  Weight: 3.77 kg

DRUGS (4)
  1. MOMETASONE [Suspect]
     Active Substance: MOMETASONE
     Indication: Drug therapy
     Dosage: UNK (PATERNAL EXPOSURE)
     Route: 065
  2. LEVOCETIRIZINE [Suspect]
     Active Substance: LEVOCETIRIZINE
     Indication: Drug therapy
     Dosage: UNK (PATERNAL EXPOSURE)
     Route: 065
  3. DUPILUMAB [Suspect]
     Active Substance: DUPILUMAB
     Indication: Drug therapy
     Dosage: UNK (PATERNAL EXPOSURE)
     Route: 065
  4. BUDESONIDE\FORMOTEROL [Suspect]
     Active Substance: BUDESONIDE\FORMOTEROL
     Indication: Drug therapy
     Dosage: UNK (PATERNAL EXPOSURE)
     Route: 065

REACTIONS (2)
  - Ventricular septal defect [Unknown]
  - Paternal exposure before pregnancy [Recovered/Resolved]
